FAERS Safety Report 6355156-0 (Version None)
Quarter: 2009Q3

REPORT INFORMATION
  Report Type: 
  Country: None (occurrence: None)
  Receive Date: 20090914
  Receipt Date: 20090901
  Transmission Date: 20100115
  Serious: Yes (Death)
  Sender: FDA-Public Use
  Company Number: US-MYLANLABS-2009S1015511

PATIENT
  Age: 40 Year
  Sex: Male

DRUGS (3)
  1. CLOZAPINE [Suspect]
     Indication: SCHIZOPHRENIA
     Dosage: TITRATED OVER 4 MONTHS TO 350MG TWICE DAILY
  2. CLOZAPINE [Suspect]
  3. TOPIRAMATE [Suspect]
     Indication: WEIGHT INCREASED

REACTIONS (2)
  - CONGESTIVE CARDIOMYOPATHY [None]
  - DRUG WITHDRAWAL CONVULSIONS [None]
